FAERS Safety Report 15310124 (Version 1)
Quarter: 2018Q3

REPORT INFORMATION
  Report Type: Spontaneous
  Country: US (occurrence: US)
  Receive Date: 20180823
  Receipt Date: 20180823
  Transmission Date: 20181010
  Serious: No
  Sender: FDA-Public Use
  Company Number: US-PFIZER INC-2018338278

PATIENT
  Age: 60 Year
  Sex: Female
  Weight: 89.8 kg

DRUGS (1)
  1. LORAZEPAM. [Suspect]
     Active Substance: LORAZEPAM
     Indication: PANIC ATTACK
     Dosage: UNK

REACTIONS (3)
  - Product use in unapproved indication [Unknown]
  - Balance disorder [Unknown]
  - Fall [Unknown]
